FAERS Safety Report 9349252 (Version 1)
Quarter: 2013Q2

REPORT INFORMATION
  Report Type: Spontaneous
  Country: US (occurrence: US)
  Receive Date: 20130614
  Receipt Date: 20130614
  Transmission Date: 20140414
  Serious: Yes (Death, Hospitalization)
  Sender: FDA-Public Use
  Company Number: US-SAVIENT-2013S1000054

PATIENT
  Sex: 0

DRUGS (1)
  1. KRYSTEXXA [Suspect]
     Indication: GOUT
     Route: 042
     Dates: start: 201305, end: 201305

REACTIONS (2)
  - Death [Fatal]
  - Malaise [Fatal]
